FAERS Safety Report 13623831 (Version 1)
Quarter: 2017Q2

REPORT INFORMATION
  Report Type: Spontaneous
  Country: US (occurrence: US)
  Receive Date: 20170608
  Receipt Date: 20170608
  Transmission Date: 20170830
  Serious: No
  Sender: FDA-Public Use
  Company Number: US-AUROBINDO-AUR-APL-2016-10272

PATIENT
  Sex: Female
  Weight: 81.65 kg

DRUGS (2)
  1. VENLAFAXINE EXTENDED RELEASE CAPSULE [Suspect]
     Active Substance: VENLAFAXINE HYDROCHLORIDE
     Indication: PANIC ATTACK
     Dosage: 150 MG, ONCE A DAY
     Route: 048
     Dates: start: 2014, end: 20160729
  2. VENLAFAXINE EXTENDED RELEASE CAPSULE [Suspect]
     Active Substance: VENLAFAXINE HYDROCHLORIDE
     Indication: ANXIETY

REACTIONS (11)
  - Condition aggravated [Not Recovered/Not Resolved]
  - Product substitution issue [Not Recovered/Not Resolved]
  - Panic attack [Not Recovered/Not Resolved]
  - Drug ineffective [Not Recovered/Not Resolved]
  - Withdrawal syndrome [Not Recovered/Not Resolved]
  - Feeling abnormal [Not Recovered/Not Resolved]
  - Chest discomfort [Not Recovered/Not Resolved]
  - Anxiety [Not Recovered/Not Resolved]
  - Discomfort [Not Recovered/Not Resolved]
  - Dyspnoea [Not Recovered/Not Resolved]
  - Confusional state [Not Recovered/Not Resolved]

NARRATIVE: CASE EVENT DATE: 2014
